FAERS Safety Report 8485605-3 (Version None)
Quarter: 2012Q3

REPORT INFORMATION
  Report Type: 
  Country: None (occurrence: None)
  Receive Date: 20120703
  Receipt Date: 20120625
  Transmission Date: 20120928
  Serious: Yes (Other)
  Sender: FDA-Public Use
  Company Number: CN-NAPPMUNDI-MAG-2012-0002213

PATIENT
  Age: 68 Year
  Sex: Male

DRUGS (3)
  1. TRAMADOL HCL [Suspect]
     Indication: PRODUCT USED FOR UNKNOWN INDICATION
     Route: 065
  2. MORPHINE SULFATE [Suspect]
     Dosage: 30 MG, DAILY
     Route: 048
  3. MORPHINE SULFATE [Suspect]
     Indication: CANCER PAIN
     Dosage: 60 MG, DAILY
     Route: 048

REACTIONS (2)
  - HYPERPYREXIA [None]
  - CHILLS [None]
